FAERS Safety Report 7369488-0 (Version None)
Quarter: 2011Q1

REPORT INFORMATION
  Report Type: 
  Country: None (occurrence: None)
  Receive Date: 20110323
  Receipt Date: 20110225
  Transmission Date: 20110831
  Serious: No
  Sender: FDA-Public Use
  Company Number: US-B.I. PHARMACEUTICALS,INC./RIDGEFIELD-2011-BP-07074BP

PATIENT
  Sex: Female

DRUGS (3)
  1. AMIODARONE HCL [Concomitant]
     Indication: CARDIAC DISORDER
     Route: 048
     Dates: start: 20090501
  2. PRADAXA [Suspect]
     Indication: ATRIAL FIBRILLATION
     Dosage: 300 MG
     Route: 048
     Dates: start: 20110101
  3. FUROSEMIDE [Concomitant]
     Indication: DIURETIC THERAPY
     Route: 048
     Dates: start: 20090101, end: 20110222

REACTIONS (2)
  - HYPERHIDROSIS [None]
  - NAUSEA [None]
